FAERS Safety Report 4321872-5 (Version None)
Quarter: 2004Q1

REPORT INFORMATION
  Report Type: 
  Country: None (occurrence: None)
  Receive Date: 20040322
  Receipt Date: 20040123
  Transmission Date: 20041129
  Serious: No
  Sender: FDA-Public Use
  Company Number: A-US2003-03549

PATIENT
  Age: 57 Year
  Sex: Female
  Weight: 59 kg

DRUGS (12)
  1. TRACLEER [Suspect]
     Indication: PULMONARY HYPERTENSION
     Dosage: 62.5 MG, BID, ORAL
     Route: 048
     Dates: start: 20030926, end: 20031013
  2. PREDNISONE [Concomitant]
  3. NEXIUM [Concomitant]
  4. DIGOXIN [Concomitant]
  5. K-DUR 10 [Concomitant]
  6. LASIX [Concomitant]
  7. COUMADIN [Concomitant]
  8. NITROGLYCERIN [Concomitant]
  9. MULTIVITAMIN [Concomitant]
  10. ALBUTEROL [Concomitant]
  11. NEURONTIN [Concomitant]
  12. DIOKASE [Concomitant]

REACTIONS (6)
  - ABDOMINAL PAIN [None]
  - BLOOD PRESSURE DECREASED [None]
  - DYSPNOEA [None]
  - EYELID OEDEMA [None]
  - NAUSEA [None]
  - VOMITING [None]
